FAERS Safety Report 9270834 (Version 2)
Quarter: 2014Q1

REPORT INFORMATION
  Report Type: Spontaneous
  Country: US (occurrence: US)
  Receive Date: 20130503
  Receipt Date: 20140108
  Transmission Date: 20141002
  Serious: Yes (Other)
  Sender: FDA-Public Use
  Company Number: US-009507513-1304USA017804

PATIENT
  Sex: Male

DRUGS (11)
  1. JANUVIA [Suspect]
     Indication: DIABETES MELLITUS
     Dosage: 1 TABLET/ONCE A DAY AFTER MEAL
     Route: 048
     Dates: start: 200904
  2. ACTOSE [Concomitant]
  3. AMARYL [Concomitant]
  4. LISINOPRIL [Concomitant]
  5. FLOMAX (TAMSULOSIN HYDROCHLORIDE) [Concomitant]
  6. ATENOLOL [Concomitant]
  7. CRESTOR [Concomitant]
  8. EZETIMIBE [Concomitant]
  9. ASPIRIN [Concomitant]
  10. OCUVITE [Concomitant]
  11. CALCIUM (UNSPECIFIED) [Concomitant]

REACTIONS (4)
  - Ileostomy [Recovered/Resolved]
  - Medication residue present [Recovered/Resolved]
  - Wrong technique in drug usage process [Unknown]
  - Diarrhoea [Recovered/Resolved]
